FAERS Safety Report 8828906 (Version 2)
Quarter: 2013Q1

REPORT INFORMATION
  Report Type: Spontaneous
  Country: US (occurrence: US)
  Receive Date: 20121008
  Receipt Date: 20130129
  Transmission Date: 20140127
  Serious: Yes (Other)
  Sender: FDA-Public Use
  Company Number: US-ASTRAZENECA-2012SE75628

PATIENT
  Age: 56 Year
  Sex: Male

DRUGS (1)
  1. RHINOCORT AQUA [Suspect]
     Route: 045

REACTIONS (5)
  - Myocardial infarction [Unknown]
  - Multiple allergies [Unknown]
  - Dyspnoea [Unknown]
  - Sinusitis [Unknown]
  - Drug dose omission [Unknown]
